FAERS Safety Report 7165910-3 (Version None)
Quarter: 2010Q4

REPORT INFORMATION
  Report Type: 
  Country: None (occurrence: None)
  Receive Date: 20101216
  Receipt Date: 20101207
  Transmission Date: 20110411
  Serious: Yes (Hospitalization)
  Sender: FDA-Public Use
  Company Number: US-BIOGENIDEC-2010BI023193

PATIENT
  Age: 46 Year
  Sex: Female
  Weight: 81 kg

DRUGS (2)
  1. AVONEX [Suspect]
     Indication: MULTIPLE SCLEROSIS
     Route: 030
     Dates: start: 20100314, end: 20100526
  2. TOPAMAX [Concomitant]
     Indication: MIGRAINE
     Dates: start: 20100220, end: 20100526

REACTIONS (5)
  - ALOPECIA [None]
  - MIGRAINE [None]
  - MULTIPLE SCLEROSIS [None]
  - MYOCLONUS [None]
  - STRESS [None]
